FAERS Safety Report 5704678-1 (Version None)
Quarter: 2008Q2

REPORT INFORMATION
  Report Type: 
  Country: None (occurrence: None)
  Receive Date: 20080414
  Receipt Date: 20080408
  Transmission Date: 20081010
  Serious: Yes (Death, Other)
  Sender: FDA-Public Use
  Company Number: PHHY2008JP01189

PATIENT
  Age: 62 Year
  Sex: Female

DRUGS (10)
  1. COMTAN [Suspect]
     Indication: PARKINSON'S DISEASE
     Dosage: 600 MG/DAY
     Route: 048
     Dates: start: 20070522
  2. COMTAN [Suspect]
     Dosage: 500 MG
  3. COMTAN [Suspect]
     Dosage: 300 MG
     Dates: start: 20080121
  4. GLYSENNID [Concomitant]
     Route: 048
  5. MAGLAX [Concomitant]
     Route: 065
  6. PURGATIVES AND CLYSTERS [Concomitant]
     Route: 054
  7. EC DOPARL [Concomitant]
     Dosage: 5 DF
     Route: 048
  8. DOPS [Concomitant]
     Dosage: 3 DF
     Route: 048
  9. PRAMIPEXOLE DIHYDROCHLORIDE [Concomitant]
     Dosage: 4 DF/DAY
     Route: 048
  10. METLIGINE [Concomitant]
     Dosage: 4 DF/DAY
     Route: 048

REACTIONS (23)
  - ABDOMINAL PAIN [None]
  - ASPARTATE AMINOTRANSFERASE INCREASED [None]
  - BLOOD ALKALINE PHOSPHATASE INCREASED [None]
  - BLOOD AMYLASE INCREASED [None]
  - BLOOD CREATININE INCREASED [None]
  - BLOOD LACTATE DEHYDROGENASE INCREASED [None]
  - BOWEL MOVEMENT IRREGULARITY [None]
  - CARDIO-RESPIRATORY ARREST [None]
  - COMPUTERISED TOMOGRAM ABNORMAL [None]
  - CONSTIPATION [None]
  - ENEMA ADMINISTRATION [None]
  - FLATULENCE [None]
  - GAIT DISTURBANCE [None]
  - GASTROINTESTINAL PERFORATION [None]
  - LOSS OF CONSCIOUSNESS [None]
  - MALAISE [None]
  - MONOCYTE COUNT DECREASED [None]
  - NAUSEA [None]
  - NEUTROPHIL COUNT INCREASED [None]
  - RESPIRATORY ARREST [None]
  - RESUSCITATION [None]
  - SEPSIS [None]
  - SHOCK [None]
